FAERS Safety Report 6506298-8 (Version None)
Quarter: 2009Q4

REPORT INFORMATION
  Report Type: 
  Country: None (occurrence: None)
  Receive Date: 20091218
  Receipt Date: 20091211
  Transmission Date: 20100525
  Serious: Yes (Other)
  Sender: FDA-Public Use
  Company Number: US-GENENTECH-260306

PATIENT

DRUGS (2)
  1. RITUXAN [Suspect]
     Indication: WALDENSTROM'S MACROGLOBULINAEMIA
     Dosage: 375 MG/M2, DAYS1,8,15 + 22
     Route: 042
  2. BORTEZOMIB [Suspect]
     Indication: WALDENSTROM'S MACROGLOBULINAEMIA
     Dosage: 1.6 MG/M2, DAYS1,8,15
     Route: 042

REACTIONS (7)
  - ANAEMIA [None]
  - DISEASE PROGRESSION [None]
  - HYPONATRAEMIA [None]
  - NEUROPATHY PERIPHERAL [None]
  - NEUTROPENIA [None]
  - THROMBOCYTOPENIA [None]
  - WALDENSTROM'S MACROGLOBULINAEMIA [None]
